FAERS Safety Report 8517126-3 (Version None)
Quarter: 2012Q3

REPORT INFORMATION
  Report Type: 
  Country: None (occurrence: None)
  Receive Date: 20120718
  Receipt Date: 20120706
  Transmission Date: 20120928
  Serious: Yes (Other)
  Sender: FDA-Public Use
  Company Number: US-BRISTOL-MYERS SQUIBB COMPANY-16749772

PATIENT
  Age: 45 Year
  Sex: Female
  Weight: 94 kg

DRUGS (3)
  1. ORENCIA [Suspect]
     Dosage: LAST INFUSION ON MAY2012.
  2. CHROMIUM CHLORIDE [Concomitant]
  3. VITAMIN B-12 [Concomitant]

REACTIONS (2)
  - CYST [None]
  - PYREXIA [None]
